FAERS Safety Report 23867778 (Version 2)
Quarter: 2024Q3

REPORT INFORMATION
  Report Type: Spontaneous
  Country: CA (occurrence: CA)
  Receive Date: 20240517
  Receipt Date: 20240711
  Transmission Date: 20241016
  Serious: Yes (Other)
  Sender: PFIZER
  Company Number: CA-PFIZER INC-202400107502

PATIENT
  Age: 49 Year
  Sex: Male

DRUGS (2)
  1. ABRILADA [Suspect]
     Active Substance: ADALIMUMAB-AFZB
     Indication: Colitis ulcerative
     Dosage: EVERY 2 WEEK
     Route: 058
     Dates: start: 20220513
  2. ABRILADA [Suspect]
     Active Substance: ADALIMUMAB-AFZB
     Dosage: EVERY 2 WEEK
     Route: 058
     Dates: start: 20240510

REACTIONS (2)
  - Gallbladder operation [Unknown]
  - Off label use [Unknown]

NARRATIVE: CASE EVENT DATE: 20220513
